FAERS Safety Report 13596079 (Version 1)
Quarter: 2017Q2

REPORT INFORMATION
  Report Type: Spontaneous
  Country: US (occurrence: US)
  Receive Date: 20170531
  Receipt Date: 20170531
  Transmission Date: 20170830
  Serious: No
  Sender: FDA-Public Use
  Company Number: US-JNJFOC-20170313132

PATIENT
  Age: 51 Year
  Sex: Female
  Weight: 55.79 kg

DRUGS (2)
  1. TYLENOL 8HR [Suspect]
     Active Substance: ACETAMINOPHEN
     Route: 048
  2. TYLENOL 8HR [Suspect]
     Active Substance: ACETAMINOPHEN
     Indication: MUSCLE STRAIN
     Dosage: 2 CAPLETS AN HOUR AND A HALF BEFORE BEDTIME
     Route: 048
     Dates: start: 20170308, end: 20170309

REACTIONS (6)
  - Inappropriate schedule of drug administration [Recovering/Resolving]
  - Wrong technique in product usage process [Recovering/Resolving]
  - Headache [Recovering/Resolving]
  - Condition aggravated [Recovering/Resolving]
  - Underdose [Recovering/Resolving]
  - Drug ineffective [Unknown]

NARRATIVE: CASE EVENT DATE: 20170308
